FAERS Safety Report 9144945 (Version 1)
Quarter: 2013Q1

REPORT INFORMATION
  Report Type: Spontaneous
  Country: SE (occurrence: SE)
  Receive Date: 20130307
  Receipt Date: 20130307
  Transmission Date: 20140127
  Serious: Yes (Life-Threatening, Other)
  Sender: FDA-Public Use
  Company Number: SE-BIOGENIDEC-2013BI020689

PATIENT
  Age: 57 Year
  Sex: Male

DRUGS (4)
  1. TYSABRI [Suspect]
     Indication: PRODUCT USED FOR UNKNOWN INDICATION
     Route: 042
     Dates: start: 20100528, end: 20120814
  2. BISOPROLOL ACTAVIS [Concomitant]
     Indication: PRODUCT USED FOR UNKNOWN INDICATION
  3. CITALOPRAM ACTAVIS FILM-COATED [Concomitant]
     Indication: PRODUCT USED FOR UNKNOWN INDICATION
  4. DETRUSITOL FILMCOATED [Concomitant]
     Indication: PRODUCT USED FOR UNKNOWN INDICATION

REACTIONS (1)
  - Myelodysplastic syndrome [Not Recovered/Not Resolved]
